FAERS Safety Report 8249568-8 (Version None)
Quarter: 2012Q2

REPORT INFORMATION
  Report Type: 
  Country: None (occurrence: None)
  Receive Date: 20120402
  Receipt Date: 20120323
  Transmission Date: 20120825
  Serious: Yes (Other)
  Sender: FDA-Public Use
  Company Number: GB-ASTELLAS-2012EU001550

PATIENT
  Sex: Female
  Weight: 83 kg

DRUGS (3)
  1. VESICARE [Suspect]
     Indication: URGE INCONTINENCE
     Dosage: 5 MG, UID/QD
     Route: 048
     Dates: start: 20120116, end: 20120214
  2. LANSOPRAZOLE [Concomitant]
     Dosage: 15 MG, UID/QD
     Route: 065
  3. VENLAFAXINE [Concomitant]
     Dosage: 37.5 MG, BID
     Route: 065

REACTIONS (3)
  - SWOLLEN TONGUE [None]
  - DYSPNOEA [None]
  - DRY MOUTH [None]
